FAERS Safety Report 7506201-8 (Version None)
Quarter: 2011Q2

REPORT INFORMATION
  Report Type: 
  Country: None (occurrence: None)
  Receive Date: 20110526
  Receipt Date: 20110523
  Transmission Date: 20111010
  Serious: Yes (Other)
  Sender: FDA-Public Use
  Company Number: US-PFIZER INC-2011008792

PATIENT
  Sex: Male

DRUGS (5)
  1. FOLIC ACID [Concomitant]
     Indication: ULCER
     Dosage: UNK
     Dates: start: 20050101
  2. CHANTIX [Suspect]
     Indication: SMOKING CESSATION THERAPY
     Dosage: 0.5 MG/1 MG PILLS, DAILY
     Route: 048
     Dates: start: 20070328, end: 20090331
  3. PREDNISONE [Concomitant]
     Indication: ARTHRITIS
     Dosage: UNK
  4. METHOTREXATE [Concomitant]
     Indication: RHEUMATOID ARTHRITIS
     Dosage: UNK
     Dates: start: 20050101
  5. PROTONIX [Concomitant]
     Indication: RHEUMATOID ARTHRITIS
     Dosage: UNK
     Dates: start: 20050101

REACTIONS (7)
  - HOSTILITY [None]
  - UPPER LIMB FRACTURE [None]
  - DEPRESSION [None]
  - LOSS OF CONSCIOUSNESS [None]
  - ROTATOR CUFF SYNDROME [None]
  - JOINT DISLOCATION [None]
  - FALL [None]
